FAERS Safety Report 20656032 (Version 3)
Quarter: 2023Q1

REPORT INFORMATION
  Report Type: Spontaneous
  Country: FR (occurrence: FR)
  Receive Date: 20220330
  Receipt Date: 20230306
  Transmission Date: 20230418
  Serious: Yes (Other)
  Sender: FDA-Public Use
  Company Number: FR-BRISTOL-MYERS SQUIBB COMPANY-2022-010085

PATIENT
  Age: 71 Year
  Sex: Male

DRUGS (2)
  1. ONUREG [Suspect]
     Active Substance: AZACITIDINE
     Indication: Acute myeloid leukaemia
     Dosage: MORE THAN OR EQUAL TO 6 CYCLES
     Route: 048
     Dates: start: 202109
  2. Ondanseton [Concomitant]
     Indication: Prophylaxis

REACTIONS (3)
  - Urinary tract infection enterococcal [Unknown]
  - Constipation [Unknown]
  - Acute myeloid leukaemia recurrent [Unknown]

NARRATIVE: CASE EVENT DATE: 20221001
